FAERS Safety Report 7111451-9 (Version None)
Quarter: 2010Q4

REPORT INFORMATION
  Report Type: 
  Country: None (occurrence: None)
  Receive Date: 20101118
  Receipt Date: 20100111
  Transmission Date: 20110411
  Serious: No
  Sender: FDA-Public Use
  Company Number: US-TEVA-220625USA

PATIENT
  Sex: Female
  Weight: 136.2 kg

DRUGS (5)
  1. ALBUTEROL SULFATE AUTOHALER [Suspect]
     Indication: ASTHMA
     Route: 055
     Dates: start: 20081201
  2. SERETIDE [Concomitant]
  3. LANSOPRAZOLE [Concomitant]
  4. ESCITALOPRAM OXALATE [Concomitant]
  5. METFORMIN HCL [Concomitant]

REACTIONS (1)
  - DRUG INEFFECTIVE [None]
